FAERS Safety Report 15290253 (Version 3)
Quarter: 2018Q3

REPORT INFORMATION
  Report Type: Report from Study
  Country: CA (occurrence: CA)
  Receive Date: 20180817
  Receipt Date: 20180918
  Transmission Date: 20181010
  Serious: Yes (Hospitalization, Other)
  Sender: FDA-Public Use
  Company Number: CA-GLAXOSMITHKLINE-CA2018GSK149181

PATIENT
  Sex: Female

DRUGS (1)
  1. MEPOLIZUMAB [Suspect]
     Active Substance: MEPOLIZUMAB
     Indication: ASTHMA
     Dosage: 100 MG, Z, MONTHLY
     Route: 042

REACTIONS (6)
  - Cough [Recovered/Resolved]
  - Pneumonia bacterial [Unknown]
  - Lung infection [Unknown]
  - Dyspnoea [Unknown]
  - Mucosal discolouration [Unknown]
  - Productive cough [Unknown]
